FAERS Safety Report 6839997-9 (Version None)
Quarter: 2010Q3

REPORT INFORMATION
  Report Type: 
  Country: None (occurrence: None)
  Receive Date: 20100709
  Receipt Date: 20100629
  Transmission Date: 20110219
  Serious: Yes (Hospitalization)
  Sender: FDA-Public Use
  Company Number: 2010SP036553

PATIENT
  Age: 67 Year
  Sex: Male

DRUGS (1)
  1. INTRON A [Suspect]
     Indication: MALIGNANT MELANOMA
     Dosage: 42 MIU; IV
     Route: 042
     Dates: start: 20100621, end: 20100625

REACTIONS (3)
  - BLOOD SODIUM DECREASED [None]
  - HYPOTENSION [None]
  - POLLAKIURIA [None]
